FAERS Safety Report 6529324-9 (Version None)
Quarter: 2010Q1

REPORT INFORMATION
  Report Type: 
  Country: None (occurrence: None)
  Receive Date: 20100107
  Receipt Date: 20091229
  Transmission Date: 20100710
  Serious: Yes (Other)
  Sender: FDA-Public Use
  Company Number: PHBS2000AU11529

PATIENT
  Sex: Male

DRUGS (10)
  1. CLOZARIL [Suspect]
     Indication: SCHIZOPHRENIA
     Dosage: 425 MG, UNK
     Route: 048
     Dates: start: 19941122
  2. CLOZARIL [Suspect]
     Dosage: 550 MG, UNK
     Route: 048
     Dates: start: 20081208
  3. CLOZARIL [Suspect]
     Dosage: 450 MG, UNK
     Route: 048
     Dates: start: 20090204, end: 20091130
  4. CLOZARIL [Suspect]
     Dosage: 425 MG, UNK
     Route: 048
     Dates: start: 20091229
  5. VALPROATE SODIUM [Concomitant]
     Dosage: 1700 MG/DAY
  6. VALPROATE SODIUM [Concomitant]
     Dosage: 200 MG, BID
  7. ATENOLOL [Concomitant]
     Dosage: 50 MG/DAY
  8. CLONAZEPAM [Concomitant]
     Dosage: .5 MG, BID
  9. EPILIM [Concomitant]
     Dosage: 200 MG, TID
  10. RISPERIDONE [Concomitant]
     Dosage: 4 MG NOCTE

REACTIONS (10)
  - BLOOD SODIUM DECREASED [None]
  - CACHEXIA [None]
  - CARDIOMYOPATHY [None]
  - DYSPNOEA [None]
  - ECHOCARDIOGRAM ABNORMAL [None]
  - EMPHYSEMA [None]
  - MALAISE [None]
  - PANCOAST'S TUMOUR [None]
  - RESPIRATORY RATE INCREASED [None]
  - WHEEZING [None]
